FAERS Safety Report 24204089 (Version 2)
Quarter: 2024Q4

REPORT INFORMATION
  Report Type: Spontaneous
  Country: CN (occurrence: CN)
  Receive Date: 20240813
  Receipt Date: 20241025
  Transmission Date: 20250114
  Serious: Yes (Hospitalization, Other)
  Sender: RANBAXY
  Company Number: CN-SUN PHARMACEUTICAL INDUSTRIES LTD-2024R1-461767

PATIENT
  Age: 61 Year
  Sex: Female

DRUGS (2)
  1. OXALIPLATIN [Suspect]
     Active Substance: OXALIPLATIN
     Indication: Chemotherapy
     Dosage: 150 MILLIGRAM
     Route: 065
     Dates: start: 20200608
  2. TEGAFUR [Suspect]
     Active Substance: TEGAFUR
     Indication: Chemotherapy
     Dosage: 50MG IN MORNING AND 75MG IN EVENING
     Route: 048
     Dates: start: 20200608

REACTIONS (2)
  - Disease progression [Unknown]
  - Condition aggravated [Unknown]
